FAERS Safety Report 15796387 (Version 1)
Quarter: 2019Q1

REPORT INFORMATION
  Report Type: Spontaneous
  Country: US (occurrence: US)
  Receive Date: 20190108
  Receipt Date: 20190108
  Transmission Date: 20190417
  Serious: Yes (Other)
  Sender: FDA-Public Use
  Company Number: US-GW PHARMA-201812USGW0711

PATIENT

DRUGS (3)
  1. EPIDIOLEX [Suspect]
     Active Substance: CANNABIDIOL
     Indication: PRODUCT USED FOR UNKNOWN INDICATION
     Dosage: 9.7 MG/KG, 350 MILLIGRAM, BID
     Route: 048
     Dates: start: 20181208, end: 20181231
  2. ONFI [Concomitant]
     Active Substance: CLOBAZAM
     Dosage: 60 MILLIGRAM, QD
     Route: 065
     Dates: start: 201812
  3. ONFI [Concomitant]
     Active Substance: CLOBAZAM
     Indication: PRODUCT USED FOR UNKNOWN INDICATION
     Dosage: 70 MILLIGRAM, QD
     Route: 065
     Dates: end: 201812

REACTIONS (3)
  - Feeling abnormal [Not Recovered/Not Resolved]
  - Sedation [Recovering/Resolving]
  - Seizure [Recovered/Resolved]

NARRATIVE: CASE EVENT DATE: 20181208
